FAERS Safety Report 8273330-3 (Version None)
Quarter: 2012Q2

REPORT INFORMATION
  Report Type: 
  Country: None (occurrence: None)
  Receive Date: 20120411
  Receipt Date: 20120406
  Transmission Date: 20120825
  Serious: Yes (Other)
  Sender: FDA-Public Use
  Company Number: PHHY2012JP027406

PATIENT
  Age: 67 Year
  Sex: Female

DRUGS (2)
  1. CARBAMAZEPINE [Suspect]
     Dosage: 600 MG PER DAY
     Route: 048
     Dates: start: 20110101
  2. CARBAMAZEPINE [Suspect]
     Indication: TRIGEMINAL NEURALGIA
     Dosage: 200 MG PER DAY
     Route: 048
     Dates: start: 20110101, end: 20110101

REACTIONS (3)
  - TRIGEMINAL NEURALGIA [None]
  - IDIOPATHIC THROMBOCYTOPENIC PURPURA [None]
  - DIZZINESS [None]
